FAERS Safety Report 22318956 (Version 4)
Quarter: 2024Q1

REPORT INFORMATION
  Report Type: Spontaneous
  Country: JP (occurrence: JP)
  Receive Date: 20230515
  Receipt Date: 20240223
  Transmission Date: 20240410
  Serious: Yes (Other)
  Sender: FDA-Public Use
  Company Number: JP-ASTELLAS-2023JP005515

PATIENT
  Age: 6 Decade
  Sex: Female

DRUGS (3)
  1. PADCEV [Suspect]
     Active Substance: ENFORTUMAB VEDOTIN-EJFV
     Indication: Transitional cell carcinoma
     Dosage: 1.25 MG/KG (BODY WEIGHT), IV DRIP OVER 30 MINS, ONCE WEEKLY FOR 3 CONSECUTIVE WEEKS, STOPPED AT W 4
     Route: 041
  2. PADCEV [Suspect]
     Active Substance: ENFORTUMAB VEDOTIN-EJFV
     Dosage: 1.25 MG/KG (BODY WEIGHT), IV DRIP OVER 30 MINS, ONCE WEEKLY FOR 3 CONSECUTIVE WEEKS, STOPPED AT W 4
     Route: 041
  3. PADCEV [Suspect]
     Active Substance: ENFORTUMAB VEDOTIN-EJFV
     Dosage: 1.0 MG/KG (BODY WEIGHT), IV DRIP OVER 30 MINS, ONCE WEEKLY FOR 3 CONSECUTIVE WEEKS, STOPPED AT W 4
     Route: 041
     Dates: start: 202305

REACTIONS (3)
  - Alanine aminotransferase increased [Recovered/Resolved]
  - Aspartate aminotransferase increased [Recovered/Resolved]
  - Ileus [Recovered/Resolved]
